FAERS Safety Report 16628128 (Version 1)
Quarter: 2019Q3

REPORT INFORMATION
  Report Type: Report from Study
  Country: US (occurrence: US)
  Receive Date: 20190724
  Receipt Date: 20190724
  Transmission Date: 20191004
  Serious: Yes (Hospitalization)
  Sender: FDA-Public Use
  Company Number: US-BIOMARINP-000744

PATIENT
  Age: 6 Year
  Sex: Female
  Weight: 14.52 kg

DRUGS (1)
  1. NAGLAZYME [Suspect]
     Active Substance: GALSULFASE
     Indication: MUCOPOLYSACCHARIDOSIS VI
     Dosage: 1 MILLIGRAM/KILOGRAM, QW
     Route: 041
     Dates: start: 20060712

REACTIONS (1)
  - Cervical cord compression [Recovered/Resolved]

NARRATIVE: CASE EVENT DATE: 20080904
